FAERS Safety Report 9421366 (Version 1)
Quarter: 2013Q3

REPORT INFORMATION
  Report Type: Spontaneous
  Country: RU (occurrence: RU)
  Receive Date: 20130725
  Receipt Date: 20130725
  Transmission Date: 20140515
  Serious: Yes (Life-Threatening, Hospitalization, Other)
  Sender: FDA-Public Use
  Company Number: RU-ABBOTT-13P-251-1124077-00

PATIENT
  Age: 60 Year
  Sex: Male

DRUGS (2)
  1. HUMIRA [Suspect]
     Indication: ANKYLOSING SPONDYLITIS
     Route: 058
     Dates: end: 20130705
  2. HUMIRA [Suspect]
     Indication: PSORIASIS

REACTIONS (3)
  - Asphyxia [Recovering/Resolving]
  - Hypersensitivity [Recovering/Resolving]
  - Psoriasis [Unknown]
